FAERS Safety Report 9807335 (Version 1)
Quarter: 2014Q1

REPORT INFORMATION
  Report Type: Spontaneous
  Country: FR (occurrence: FR)
  Receive Date: 20140110
  Receipt Date: 20140110
  Transmission Date: 20141002
  Serious: Yes (Death, Hospitalization)
  Sender: FDA-Public Use
  Company Number: FR-BRISTOL-MYERS SQUIBB COMPANY-19976083

PATIENT
  Age: 85 Year
  Sex: Male

DRUGS (14)
  1. COUMADINE [Suspect]
     Route: 048
     Dates: start: 20131029, end: 20131103
  2. CIFLOX [Suspect]
     Dosage: INTER-06SEP13?18SEP13-30SEP13
     Route: 042
     Dates: start: 20130826, end: 20131107
  3. BACTRIM FORTE [Suspect]
     Route: 048
     Dates: start: 20130925, end: 20131106
  4. CLAMOXYL [Suspect]
     Dosage: INTER-31AUG13?25SEP13-07NOV13
     Route: 048
     Dates: start: 20130925, end: 20131107
  5. EUPANTOL [Suspect]
     Route: 048
     Dates: start: 20130930, end: 20131107
  6. METFORMIN [Concomitant]
  7. DIAMICRON [Concomitant]
  8. PRAVASTATIN SODIUM [Concomitant]
  9. IRBESARTAN [Concomitant]
  10. BISOPROLOL FUMARATE [Concomitant]
  11. PARIET [Concomitant]
  12. KARDEGIC [Concomitant]
  13. IBUPROFEN [Concomitant]
  14. DAFALGAN [Concomitant]

REACTIONS (3)
  - Drug reaction with eosinophilia and systemic symptoms [Recovered/Resolved]
  - Muscle haemorrhage [Fatal]
  - Electrocardiogram ST segment elevation [Fatal]
